FAERS Safety Report 8054185-9 (Version None)
Quarter: 2012Q1

REPORT INFORMATION
  Report Type: 
  Country: None (occurrence: None)
  Receive Date: 20120118
  Receipt Date: 20120112
  Transmission Date: 20120608
  Serious: Yes (Other)
  Sender: FDA-Public Use
  Company Number: US-ROCHE-1006237

PATIENT
  Sex: Male
  Weight: 77.18 kg

DRUGS (4)
  1. ACCUTANE [Suspect]
     Indication: ACNE
     Dates: start: 19980101, end: 19990101
  2. ACCUTANE [Suspect]
     Dates: start: 20000919, end: 20010501
  3. PREVIDENT [Concomitant]
  4. AMOXICILLIN [Concomitant]

REACTIONS (4)
  - DEPRESSION [None]
  - INFLAMMATORY BOWEL DISEASE [None]
  - PROCTITIS ULCERATIVE [None]
  - GASTROOESOPHAGEAL REFLUX DISEASE [None]
